FAERS Safety Report 8309975-1 (Version None)
Quarter: 2012Q2

REPORT INFORMATION
  Report Type: 
  Country: None (occurrence: None)
  Receive Date: 20120425
  Receipt Date: 20120420
  Transmission Date: 20120825
  Serious: Yes (Death)
  Sender: FDA-Public Use
  Company Number: FR-PFIZER INC-2012099716

PATIENT
  Age: 72 Year

DRUGS (1)
  1. TORISEL [Suspect]
     Indication: MANTLE CELL LYMPHOMA
     Dosage: 75 MG, (FREQUENCY UNSPECIFIED)

REACTIONS (1)
  - DEATH [None]
